FAERS Safety Report 4801087-4 (Version None)
Quarter: 2005Q4

REPORT INFORMATION
  Report Type: 
  Country: None (occurrence: None)
  Receive Date: 20051011
  Receipt Date: 20051006
  Transmission Date: 20060501
  Serious: Yes (Life-Threatening, Hospitalization)
  Sender: FDA-Public Use
  Company Number: SEWYE776327JUN05

PATIENT
  Age: 64 Year
  Sex: Male

DRUGS (6)
  1. CYCLOSPORINE [Suspect]
     Indication: PROPHYLAXIS AGAINST TRANSPLANT REJECTION
     Dosage: 175 MG 2X PER 1 DAY, ORAL
     Route: 048
     Dates: start: 20050523, end: 20050623
  2. PREDNISOLONE [Concomitant]
  3. MYCOPHENOLATE MOFETIL (MYCOPHENOLATE MOFETIL) [Concomitant]
  4. FLUCONAZOLE [Concomitant]
  5. INSULIN [Concomitant]
  6. OMEPRAZOLE [Concomitant]

REACTIONS (3)
  - GRAFT HAEMORRHAGE [None]
  - POSTOPERATIVE INFECTION [None]
  - VASCULAR PROCEDURE COMPLICATION [None]
